FAERS Safety Report 4627694-X (Version None)
Quarter: 2005Q2

REPORT INFORMATION
  Report Type: 
  Country: None (occurrence: None)
  Receive Date: 20050401
  Receipt Date: 20050323
  Transmission Date: 20051028
  Serious: Yes (Other)
  Sender: FDA-Public Use
  Company Number: 2005-03-0858

PATIENT
  Age: 34 Year
  Sex: Female
  Weight: 95 kg

DRUGS (5)
  1. CLARITIN-D [Suspect]
     Indication: NASOPHARYNGITIS
     Dosage: 1 TAB BID ORAL
     Route: 048
     Dates: start: 20050304, end: 20050306
  2. ACETAMINOPHEN [Suspect]
     Indication: NASOPHARYNGITIS
     Dosage: 500MG QD ORAL
     Route: 048
     Dates: start: 20050304, end: 20050306
  3. BUSCOPAN TABLETS [Suspect]
     Indication: NASOPHARYNGITIS
     Dosage: 10MG QD ORAL
     Route: 048
     Dates: start: 20050304, end: 20050306
  4. UTROGESTAN (MICRONIZED ORAL PROGESTERONE) [Concomitant]
  5. CALCIUM FOLINATE [Concomitant]

REACTIONS (3)
  - DRUG EXPOSURE DURING PREGNANCY [None]
  - PREGNANCY [None]
  - PREMATURE SEPARATION OF PLACENTA [None]
